FAERS Safety Report 20407052 (Version 6)
Quarter: 2022Q3

REPORT INFORMATION
  Report Type: Report from Study
  Country: CN (occurrence: CN)
  Receive Date: 20220131
  Receipt Date: 20220810
  Transmission Date: 20221027
  Serious: Yes (Hospitalization)
  Sender: FDA-Public Use
  Company Number: CN-PFIZER INC-202200131072

PATIENT
  Age: 66 Year
  Sex: Female
  Weight: 47 kg

DRUGS (12)
  1. LORLATINIB [Suspect]
     Active Substance: LORLATINIB
     Indication: Non-small cell lung cancer
     Dosage: 100 MG, ONCE DAILY
     Route: 048
     Dates: start: 20190823, end: 20210625
  2. LORLATINIB [Suspect]
     Active Substance: LORLATINIB
     Dosage: 100 MG, ONCE DAILY
     Route: 048
     Dates: start: 20210629, end: 20210805
  3. LORLATINIB [Suspect]
     Active Substance: LORLATINIB
     Dosage: 100 MG, ONCE DAILY
     Route: 048
     Dates: start: 20210809, end: 20211009
  4. LORLATINIB [Suspect]
     Active Substance: LORLATINIB
     Dosage: 100 MG, ONCE DAILY
     Route: 048
     Dates: start: 20211019, end: 20211028
  5. LORLATINIB [Suspect]
     Active Substance: LORLATINIB
     Dosage: 100 MG, ONCE DAILY
     Route: 048
     Dates: start: 20211102, end: 20211209
  6. LORLATINIB [Suspect]
     Active Substance: LORLATINIB
     Dosage: 100 MG, ONCE DAILY
     Route: 048
     Dates: start: 20211215, end: 20211230
  7. ROSUVASTATIN CALCIUM [Concomitant]
     Active Substance: ROSUVASTATIN CALCIUM
     Indication: Hypercholesterolaemia
     Dosage: 20 MG, 1X/DAY
     Route: 048
     Dates: start: 20190830
  8. POTASSIUM CHLORIDE [Concomitant]
     Active Substance: POTASSIUM CHLORIDE
     Indication: Hypokalaemia
     Dosage: 1 G, BID, SUSTAINED RELEASE TABLET
     Route: 048
     Dates: start: 20210422
  9. SHENG XUE BAO [Concomitant]
     Indication: Anaemia
     Dosage: 8 G, BID
     Route: 048
     Dates: start: 20210816
  10. JIN SHUI BAO [Concomitant]
     Indication: Prophylaxis
     Dosage: 0.99 G, TID
     Route: 048
     Dates: start: 20211012
  11. NIAO DU QING [Concomitant]
     Indication: Prophylaxis
     Dosage: 10 G, TID
     Route: 048
     Dates: start: 20211012
  12. POTASSIUM CHLORIDE [Concomitant]
     Active Substance: POTASSIUM CHLORIDE
     Indication: Prophylaxis
     Dosage: 1 G, TID
     Route: 048
     Dates: start: 20211028

REACTIONS (1)
  - Acute kidney injury [Not Recovered/Not Resolved]

NARRATIVE: CASE EVENT DATE: 20211229
